FAERS Safety Report 5266057-3 (Version None)
Quarter: 2007Q1

REPORT INFORMATION
  Report Type: 
  Country: None (occurrence: None)
  Receive Date: 20070315
  Receipt Date: 20070302
  Transmission Date: 20070707
  Serious: Yes (Other)
  Sender: FDA-Public Use
  Company Number: PHBS2007JP02746

PATIENT
  Age: 22 Year
  Sex: Female
  Weight: 58 kg

DRUGS (4)
  1. TEGRETOL [Suspect]
     Indication: EPILEPSY
     Dosage: 200 MG/DAY
     Route: 048
     Dates: start: 19920101
  2. TEGRETOL [Suspect]
     Dosage: 700 MG/DAY
     Route: 048
     Dates: start: 20060615
  3. EXCEGRAN [Concomitant]
     Indication: EPILEPSY
     Dosage: 200 MG/DAY
     Route: 048
     Dates: start: 20050204
  4. MYSTAN AZWELL [Concomitant]
     Indication: EPILEPSY
     Dosage: 10 MG/DAY
     Route: 048
     Dates: end: 20050603

REACTIONS (5)
  - ABSCESS [None]
  - COLLAGEN DISORDER [None]
  - FEELING COLD [None]
  - PAIN [None]
  - RAYNAUD'S PHENOMENON [None]
